FAERS Safety Report 14281932 (Version 2)
Quarter: 2018Q2

REPORT INFORMATION
  Report Type: Report from Study
  Country: US (occurrence: US)
  Receive Date: 20171213
  Receipt Date: 20180611
  Transmission Date: 20180711
  Serious: Yes (Hospitalization, Other)
  Sender: FDA-Public Use
  Company Number: US-EISAI MEDICAL RESEARCH-E2B_00000000010071

PATIENT
  Age: 66 Year
  Sex: Female
  Weight: 137.3 kg

DRUGS (13)
  1. AMARYL [Concomitant]
     Active Substance: GLIMEPIRIDE
     Dosage: 4-MG-ONCE A DAY
     Route: 048
     Dates: start: 201208
  2. METOPROLOL. [Concomitant]
     Active Substance: METOPROLOL
     Dosage: 50-MG-BID
     Route: 048
     Dates: start: 20090702
  3. SERTRALINE [Concomitant]
     Active Substance: SERTRALINE HYDROCHLORIDE
     Dosage: 50-MG-ONCE A DAY
     Route: 048
     Dates: start: 20140630, end: 20140706
  4. LORCASERIN [Suspect]
     Active Substance: LORCASERIN HYDROCHLORIDE
     Indication: WEIGHT CONTROL
     Route: 048
     Dates: start: 20140623, end: 20140703
  5. ATIVAN [Concomitant]
     Active Substance: LORAZEPAM
     Dosage: 0.5-MG-PRN
     Route: 048
     Dates: start: 201111
  6. BYDUREON [Concomitant]
     Active Substance: EXENATIDE
     Dosage: 2-MG-OTHER(ONCE A WEEK)
     Route: 058
     Dates: start: 201306
  7. NORVASC [Concomitant]
     Active Substance: AMLODIPINE BESYLATE
     Dosage: 5-MG-ONCE A DAY
     Route: 048
     Dates: start: 20140508
  8. SIMVASTATIN. [Concomitant]
     Active Substance: SIMVASTATIN
     Dosage: 40-MG-ONCE A DAY
     Route: 048
     Dates: start: 2009
  9. LISINOPRIL. [Concomitant]
     Active Substance: LISINOPRIL
     Dosage: 5-MG-ONCE A DAY
     Route: 048
     Dates: start: 2009
  10. LEVEMIR [Concomitant]
     Active Substance: INSULIN DETEMIR
     Dosage: 50-IU OR UNITS-ONCE A DAY
     Route: 058
     Dates: start: 201108
  11. ASPIRIN. [Concomitant]
     Active Substance: ASPIRIN
     Dosage: 81-MG-BID
     Route: 048
     Dates: start: 20090702
  12. SERTRALINE [Concomitant]
     Active Substance: SERTRALINE HYDROCHLORIDE
     Dosage: 62.5-MG-ONCE A DAY
     Route: 048
     Dates: start: 2009, end: 20140630
  13. METFORMIN [Concomitant]
     Active Substance: METFORMIN HYDROCHLORIDE
     Dosage: 1000-MG-BID
     Route: 048
     Dates: start: 1999

REACTIONS (2)
  - Serotonin syndrome [Recovered/Resolved]
  - Endometrial adenocarcinoma [Not Recovered/Not Resolved]

NARRATIVE: CASE EVENT DATE: 20140626
